FAERS Safety Report 14190707 (Version 1)
Quarter: 2017Q4

REPORT INFORMATION
  Report Type: Spontaneous
  Country: US (occurrence: US)
  Receive Date: 20171114
  Receipt Date: 20171114
  Transmission Date: 20180321
  Serious: Yes (Other)
  Sender: FDA-Public Use
  Company Number: None

PATIENT
  Age: 66 Year
  Sex: Female
  Weight: 71.1 kg

DRUGS (4)
  1. VITAMIN [Concomitant]
     Active Substance: VITAMINS
  2. BUPROPION HYDROCHLORIDE XL [Suspect]
     Active Substance: BUPROPION HYDROCHLORIDE
     Indication: ATTENTION DEFICIT/HYPERACTIVITY DISORDER
     Dosage: ?          QUANTITY:1 TABLET(S);?
     Route: 048
     Dates: start: 19960701
  3. ESTRACE [Concomitant]
     Active Substance: ESTRADIOL
  4. BUPROPION. [Concomitant]
     Active Substance: BUPROPION

REACTIONS (5)
  - Anxiety [None]
  - Attention deficit/hyperactivity disorder [None]
  - Drug ineffective [None]
  - Condition aggravated [None]
  - Depression [None]

NARRATIVE: CASE EVENT DATE: 20171114
